FAERS Safety Report 4612876-3 (Version None)
Quarter: 2005Q1

REPORT INFORMATION
  Report Type: 
  Country: None (occurrence: None)
  Receive Date: 20050318
  Receipt Date: 20050301
  Transmission Date: 20050727
  Serious: Yes (Other)
  Sender: FDA-Public Use
  Company Number: US-NOVOPROD-242661

PATIENT
  Age: 15 Year
  Sex: Female

DRUGS (2)
  1. NOVOSEVEN [Suspect]
     Indication: HAEMORRHAGE
     Dosage: UNKNOWN
     Route: 042
     Dates: start: 20050209
  2. AMICAR [Suspect]
     Indication: HAEMORRHAGE
     Dosage: UNKNOWN
     Dates: start: 20050209

REACTIONS (2)
  - CATHETER RELATED COMPLICATION [None]
  - DEEP VEIN THROMBOSIS [None]
